FAERS Safety Report 9517879 (Version 1)
Quarter: 2013Q3

REPORT INFORMATION
  Report Type: Spontaneous
  Country: CA (occurrence: None)
  Receive Date: 20130910
  Receipt Date: 20130910
  Transmission Date: 20140515
  Serious: Yes (Other)
  Sender: FDA-Public Use
  Company Number: 2013080194

PATIENT
  Sex: Male

DRUGS (1)
  1. D-PENICILLAMINE (D-PENCILLAMINE) [Suspect]
     Indication: HEPATO-LENTICULAR DEGENERATION

REACTIONS (5)
  - Neurological decompensation [None]
  - Apraxia [None]
  - Eyelid function disorder [None]
  - Gait disturbance [None]
  - Risus sardonicus [None]
